FAERS Safety Report 14302361 (Version 1)
Quarter: 2017Q4

REPORT INFORMATION
  Report Type: Spontaneous
  Country: US (occurrence: US)
  Receive Date: 20171219
  Receipt Date: 20171219
  Transmission Date: 20180321
  Serious: No
  Sender: FDA-Public Use
  Company Number: US-SUPERNUS PHARMACEUTICALS, INC.-2017SUP00062

PATIENT
  Sex: Female
  Weight: 85.94 kg

DRUGS (7)
  1. TROKENDI XR [Suspect]
     Active Substance: TOPIRAMATE
     Indication: SEIZURE
     Dosage: 1 DOSAGE UNITS, 1X/DAY
  2. DEPAKOTE ER [Suspect]
     Active Substance: DIVALPROEX SODIUM
     Indication: SEIZURE
     Dosage: 1 DOSAGE UNITS, 1X/DAY AT BEDTIME
     Route: 048
  3. VITAMIN D2 [Concomitant]
     Active Substance: ERGOCALCIFEROL
     Dosage: 1 DOSAGE UNITS, 1X/WEEK
     Route: 048
  4. PERCOCET [Concomitant]
     Active Substance: ACETAMINOPHEN\OXYCODONE HYDROCHLORIDE
     Dosage: 1 DOSAGE UNITS, 3X/DAY AS NEEDED
     Route: 048
  5. VENLAFAXINE ER [Concomitant]
     Active Substance: VENLAFAXINE HYDROCHLORIDE
     Dosage: 1 DOSAGE UNITS, 1X/DAY IN THE MORNING
     Route: 048
  6. CAMBIA [Concomitant]
     Active Substance: DICLOFENAC POTASSIUM
     Indication: HEADACHE
     Dosage: 1 DOSAGE UNITS, AS NEEDED
     Route: 048
  7. TIZANIDINE. [Concomitant]
     Active Substance: TIZANIDINE
     Dosage: 1 DOSAGE UNITS, 3X/DAY
     Route: 048

REACTIONS (10)
  - Weight increased [Unknown]
  - Back pain [Unknown]
  - Depression [Unknown]
  - Arthralgia [Unknown]
  - Confusional state [Unknown]
  - Anxiety [Unknown]
  - Neck pain [Unknown]
  - Joint swelling [Unknown]
  - Insomnia [Unknown]
  - Fatigue [Unknown]
